FAERS Safety Report 8320780-2 (Version None)
Quarter: 2012Q2

REPORT INFORMATION
  Report Type: 
  Country: None (occurrence: None)
  Receive Date: 20120430
  Receipt Date: 20120420
  Transmission Date: 20120825
  Serious: Yes (Other)
  Sender: FDA-Public Use
  Company Number: PHHY2010CA33948

PATIENT
  Sex: Female

DRUGS (6)
  1. SANDOSTATIN LAR [Suspect]
     Dosage: 30 MG, EVERY FOUR WEEKS
     Route: 030
  2. SANDOSTATIN LAR [Suspect]
     Dosage: 30 MG, QMO
     Route: 030
  3. PROBIOTICS [Concomitant]
  4. SANDOSTATIN LAR [Suspect]
     Indication: CARCINOID TUMOUR
     Dosage: 30 MG, QMO
     Route: 030
     Dates: start: 20100426
  5. SANDOSTATIN LAR [Suspect]
     Dosage: 30 MG, QMO
     Route: 030
  6. SANDOSTATIN LAR [Suspect]
     Dosage: 30 MG, QMO
     Route: 030

REACTIONS (21)
  - GASTROINTESTINAL PAIN [None]
  - INTESTINAL OBSTRUCTION [None]
  - EPIGASTRIC DISCOMFORT [None]
  - WEIGHT DECREASED [None]
  - FOOD POISONING [None]
  - ABDOMINAL PAIN [None]
  - PYREXIA [None]
  - ANXIETY [None]
  - ASTHENIA [None]
  - FLUSHING [None]
  - DRUG DISPENSING ERROR [None]
  - MALAISE [None]
  - STRESS [None]
  - NAUSEA [None]
  - ABDOMINAL DISTENSION [None]
  - DIARRHOEA [None]
  - HYPOPHAGIA [None]
  - GASTROOESOPHAGEAL REFLUX DISEASE [None]
  - NASOPHARYNGITIS [None]
  - ORAL DISCOMFORT [None]
  - DYSPEPSIA [None]
